FAERS Safety Report 6823061-9 (Version None)
Quarter: 2010Q3

REPORT INFORMATION
  Report Type: 
  Country: None (occurrence: None)
  Receive Date: 20100708
  Receipt Date: 20100630
  Transmission Date: 20110219
  Serious: Yes (Other)
  Sender: FDA-Public Use
  Company Number: B0664343A

PATIENT
  Age: 43 Year

DRUGS (1)
  1. HEPTODIN [Suspect]
     Indication: PRODUCT USED FOR UNKNOWN INDICATION
     Dosage: .1G PER DAY
     Route: 048
     Dates: start: 20090101

REACTIONS (2)
  - ERECTILE DYSFUNCTION [None]
  - SINUS BRADYCARDIA [None]
